FAERS Safety Report 17770167 (Version 1)
Quarter: 2020Q2

REPORT INFORMATION
  Report Type: Spontaneous
  Country: DE (occurrence: DE)
  Receive Date: 20200512
  Receipt Date: 20200512
  Transmission Date: 20200714
  Serious: Yes (Disabling)
  Sender: FDA-Public Use
  Company Number: DE-DRREDDYS-GER/GER/20/0122768

PATIENT
  Age: 26 Year
  Sex: Male
  Weight: 83 kg

DRUGS (1)
  1. CIPROFLOXACIN. [Suspect]
     Active Substance: CIPROFLOXACIN
     Indication: BRONCHITIS
     Dosage: 2X500MG EINNAHME ZWISCHEN 2012 UND 2014 (REVENUE BETWEEN 2012 AND 2014).
     Route: 048
     Dates: start: 2012, end: 2014

REACTIONS (33)
  - Apathy [Recovered/Resolved with Sequelae]
  - Connective tissue disorder [Recovered/Resolved with Sequelae]
  - Insomnia [Recovered/Resolved with Sequelae]
  - Infection [Unknown]
  - Vomiting [Unknown]
  - Nausea [Unknown]
  - Social avoidant behaviour [Recovered/Resolved with Sequelae]
  - Herpes zoster [Unknown]
  - Exercise tolerance decreased [Recovered/Resolved with Sequelae]
  - Oropharyngeal pain [Unknown]
  - Migraine [Unknown]
  - Weight decreased [Recovered/Resolved with Sequelae]
  - Disturbance in attention [Recovered/Resolved with Sequelae]
  - Muscular weakness [Unknown]
  - Fatigue [Recovered/Resolved with Sequelae]
  - Depression [Recovered/Resolved with Sequelae]
  - Impaired quality of life [Recovered/Resolved with Sequelae]
  - Pseudodementia [Recovered/Resolved with Sequelae]
  - Depression [Unknown]
  - Sleep disorder [Recovered/Resolved with Sequelae]
  - Vomiting [Unknown]
  - Photophobia [Unknown]
  - Amnesia [Recovered/Resolved with Sequelae]
  - Renal function test abnormal [Unknown]
  - Depressed mood [Unknown]
  - Impaired work ability [Recovered/Resolved with Sequelae]
  - General physical health deterioration [Unknown]
  - Back pain [Unknown]
  - Asthenia [Unknown]
  - Dehydration [Unknown]
  - Hypophagia [Unknown]
  - Nausea [Unknown]
  - Headache [Recovered/Resolved with Sequelae]

NARRATIVE: CASE EVENT DATE: 2017
